FAERS Safety Report 6889979-6 (Version None)
Quarter: 2010Q3

REPORT INFORMATION
  Report Type: 
  Country: None (occurrence: None)
  Receive Date: 20100730
  Receipt Date: 20080625
  Transmission Date: 20110219
  Serious: No
  Sender: FDA-Public Use
  Company Number: US-PFIZER INC-2008049842

PATIENT
  Sex: Male
  Weight: 90.72 kg

DRUGS (8)
  1. LIPITOR [Suspect]
     Indication: BLOOD CHOLESTEROL ABNORMAL
  2. SIMVASTATIN [Suspect]
     Indication: BLOOD CHOLESTEROL ABNORMAL
     Dates: end: 20080101
  3. CELEXA [Concomitant]
     Indication: DEPRESSION
  4. ALLEGRA [Concomitant]
  5. AMLODIPINE [Concomitant]
  6. PRIMOX PLUS [Concomitant]
     Indication: RENAL DISORDER
  7. OMEPRAZOLE [Concomitant]
     Indication: GASTRIC DISORDER
  8. POTASSIUM [Concomitant]

REACTIONS (5)
  - ABDOMINAL DISTENSION [None]
  - DYSPEPSIA [None]
  - LIVER DISORDER [None]
  - MYALGIA [None]
  - NAUSEA [None]
